FAERS Safety Report 4686244-2 (Version None)
Quarter: 2005Q2

REPORT INFORMATION
  Report Type: 
  Country: None (occurrence: None)
  Receive Date: 20050609
  Receipt Date: 20050304
  Transmission Date: 20051028
  Serious: Yes (Hospitalization)
  Sender: FDA-Public Use
  Company Number: FR-GLAXOSMITHKLINE-B0375572A

PATIENT
  Age: 67 Year
  Sex: Male

DRUGS (5)
  1. ONDANSETRON [Suspect]
     Indication: PROPHYLAXIS OF NAUSEA AND VOMITING
     Dosage: 8MG CYCLIC
     Route: 042
     Dates: start: 20050207, end: 20050208
  2. PRIMPERAN INJ [Concomitant]
     Indication: PROPHYLAXIS OF NAUSEA AND VOMITING
     Dosage: 100MG CYCLIC
     Route: 042
     Dates: start: 20050207, end: 20050207
  3. CISPLATYL [Concomitant]
     Indication: SMALL CELL LUNG CANCER STAGE UNSPECIFIED
     Dosage: 200MG CYCLIC
     Route: 042
     Dates: start: 20050207, end: 20050207
  4. ETOPOSIDE [Concomitant]
     Indication: SMALL CELL LUNG CANCER STAGE UNSPECIFIED
     Dosage: 200MG CYCLIC
     Route: 042
     Dates: start: 20050207, end: 20050209
  5. METHYLPREDNISOLONE [Concomitant]
     Indication: PROPHYLAXIS OF NAUSEA AND VOMITING
     Dosage: 240MG CYCLIC
     Route: 042
     Dates: start: 20050207

REACTIONS (3)
  - DYSTONIA [None]
  - MUSCLE CONTRACTURE [None]
  - TRISMUS [None]
